FAERS Safety Report 14123329 (Version 4)
Quarter: 2017Q4

REPORT INFORMATION
  Report Type: Spontaneous
  Country: US (occurrence: US)
  Receive Date: 20171025
  Receipt Date: 20171127
  Transmission Date: 20180321
  Serious: Yes (Other)
  Sender: FDA-Public Use
  Company Number: US-AMGEN-USASP2017160098

PATIENT
  Age: 44 Year
  Sex: Female
  Weight: 97.61 kg

DRUGS (3)
  1. ENBREL [Suspect]
     Active Substance: ETANERCEPT
     Indication: RHEUMATOID ARTHRITIS
     Dosage: 50 MG, QWK
     Route: 058
     Dates: start: 201506, end: 20171017
  2. LEVOTHYROXINE. [Concomitant]
     Active Substance: LEVOTHYROXINE
     Indication: HYPOTHYROIDISM
     Dosage: 88 MUG, QD
  3. FLUOXETINE [Concomitant]
     Active Substance: FLUOXETINE HYDROCHLORIDE
     Indication: ANXIETY
     Dosage: 20 MG, QD

REACTIONS (20)
  - Headache [Unknown]
  - Contusion [Unknown]
  - Feeling abnormal [Unknown]
  - Blood cholesterol increased [Unknown]
  - Low density lipoprotein increased [Unknown]
  - Total cholesterol/HDL ratio decreased [Unknown]
  - Eosinophil count decreased [Unknown]
  - Mean cell haemoglobin decreased [Unknown]
  - Paraesthesia [Unknown]
  - High density lipoprotein decreased [Unknown]
  - Albumin globulin ratio decreased [Unknown]
  - Globulins increased [Unknown]
  - Red blood cell sedimentation rate increased [Unknown]
  - Migraine [Not Recovered/Not Resolved]
  - Non-high-density lipoprotein cholesterol increased [Unknown]
  - Protein total increased [Unknown]
  - Tremor [Unknown]
  - Amnesia [Unknown]
  - Blood sodium decreased [Unknown]
  - Blood triglycerides increased [Unknown]

NARRATIVE: CASE EVENT DATE: 2017
